FAERS Safety Report 14913466 (Version 1)
Quarter: 2018Q2

REPORT INFORMATION
  Report Type: Spontaneous
  Country: FR (occurrence: FR)
  Receive Date: 20180518
  Receipt Date: 20180518
  Transmission Date: 20180711
  Serious: Yes (Death, Life-Threatening)
  Sender: FDA-Public Use
  Company Number: FR-PFIZER INC-199756816PHANOV

PATIENT
  Age: 72 Year
  Sex: Male

DRUGS (2)
  1. ESTRACYT [Suspect]
     Active Substance: ESTRAMUSTINE PHOSPHATE SODIUM
     Indication: PROSTATE CANCER
     Dosage: 560 MG, 1X/DAY
     Route: 048
     Dates: start: 19970106, end: 19970221
  2. FLUTAMIDE. [Suspect]
     Active Substance: FLUTAMIDE
     Indication: PROSTATE CANCER
     Dosage: 750 MG, 1X/DAY
     Route: 048
     Dates: start: 19960405, end: 19970207

REACTIONS (2)
  - Cardiac arrest [Fatal]
  - Hepatitis [Unknown]

NARRATIVE: CASE EVENT DATE: 19970217
